FAERS Safety Report 24357586 (Version 1)
Quarter: 2024Q3

REPORT INFORMATION
  Report Type: Spontaneous
  Country: US (occurrence: None)
  Receive Date: 20240923
  Receipt Date: 20240923
  Transmission Date: 20241017
  Serious: Yes (Death)
  Sender: Public
  Company Number: None

PATIENT
  Age: 98 Year
  Sex: Female

DRUGS (5)
  1. COLLAGENASE SANTYL [Suspect]
     Active Substance: COLLAGENASE CLOSTRIDIUM HISTOLYTICUM
     Indication: Wound
     Dosage: DAILY TOPICAL
     Route: 061
     Dates: start: 20240828, end: 20240919
  2. DAKINS 0.125% SOLUTION [Concomitant]
     Dates: start: 20240823, end: 20240919
  3. LOVASTATIN 20MG TABLETS [Concomitant]
     Dates: start: 20230216, end: 20240919
  4. METOPROLOL ER SUCC 25MG TABLETS [Concomitant]
     Dates: start: 20230130, end: 20240919
  5. GALANTAMINE ER 8MG CAPSULES [Concomitant]
     Dates: start: 20230526, end: 20240919

REACTIONS (1)
  - Death [None]

NARRATIVE: CASE EVENT DATE: 20240919
